FAERS Safety Report 25976155 (Version 2)
Quarter: 2025Q4

REPORT INFORMATION
  Report Type: Spontaneous
  Country: JP (occurrence: JP)
  Receive Date: 20251029
  Receipt Date: 20251106
  Transmission Date: 20260118
  Serious: Yes (Life-Threatening, Other)
  Sender: MALLINCKRODT
  Company Number: JP-MALLINCKRODT-MNK202506503

PATIENT
  Age: 75 Year
  Sex: Male

DRUGS (10)
  1. NITRIC OXIDE [Suspect]
     Active Substance: NITRIC OXIDE
     Indication: Pulmonary hypertension
     Dosage: 20 PPM
     Route: 055
  2. NITRIC OXIDE [Suspect]
     Active Substance: NITRIC OXIDE
     Indication: Cardiac operation
  3. NITRIC OXIDE [Suspect]
     Active Substance: NITRIC OXIDE
     Indication: Cardiac procedure complication
  4. NITRIC OXIDE [Suspect]
     Active Substance: NITRIC OXIDE
     Indication: Cardiac operation
  5. NITRIC OXIDE [Suspect]
     Active Substance: NITRIC OXIDE
     Indication: Cardiac procedure complication
  6. DOBUTAMINE [Concomitant]
     Active Substance: DOBUTAMINE HYDROCHLORIDE
     Dosage: UNKNOWN
     Route: 042
  7. NADIDE [Concomitant]
     Active Substance: NADIDE
     Dosage: UNKNOWN
  8. VANCOMYCIN [Concomitant]
     Active Substance: VANCOMYCIN
     Dosage: UNKNOWN
  9. AMPICILLIN SODIUM\SULBACTAM SODIUM [Concomitant]
     Active Substance: AMPICILLIN SODIUM\SULBACTAM SODIUM
     Dosage: UNKNOWN
  10. METRONIDAZOLE [Concomitant]
     Active Substance: METRONIDAZOLE
     Dosage: UNKNOWN

REACTIONS (4)
  - Aspiration [Unknown]
  - Respiratory arrest [Unknown]
  - Atrial fibrillation [Unknown]
  - Pseudomonas infection [Unknown]
